FAERS Safety Report 25193546 (Version 2)
Quarter: 2025Q3

REPORT INFORMATION
  Report Type: Spontaneous
  Country: EU (occurrence: EU)
  Receive Date: 20250414
  Receipt Date: 20250809
  Transmission Date: 20251021
  Serious: Yes (Death, Other)
  Sender: ALEXION PHARMACEUTICALS
  Company Number: EU-ASTRAZENECA-202504GLO008263FR

PATIENT
  Age: 46 Year
  Sex: Female

DRUGS (3)
  1. TAGRISSO [Suspect]
     Active Substance: OSIMERTINIB
     Indication: Ductal adenocarcinoma of pancreas
     Dosage: 80 MILLIGRAM, QD
     Route: 065
     Dates: start: 202306, end: 202307
  2. TAGRISSO [Suspect]
     Active Substance: OSIMERTINIB
     Dosage: 40 MILLIGRAM, QD
     Route: 065
     Dates: start: 202307, end: 202308
  3. TAGRISSO [Suspect]
     Active Substance: OSIMERTINIB
     Dosage: 80 MILLIGRAM, QD
     Route: 065
     Dates: start: 202308, end: 202401

REACTIONS (7)
  - Malignant neoplasm progression [Fatal]
  - Drug resistance [Fatal]
  - MET gene amplification [Fatal]
  - Acquired gene mutation [Fatal]
  - Drug level below therapeutic [Unknown]
  - Diarrhoea [Unknown]
  - Off label use [Unknown]

NARRATIVE: CASE EVENT DATE: 20230601
